FAERS Safety Report 9479366 (Version 2)
Quarter: 2014Q2

REPORT INFORMATION
  Report Type: Spontaneous
  Country: US (occurrence: US)
  Receive Date: 20130827
  Receipt Date: 20140604
  Transmission Date: 20141212
  Serious: No
  Sender: FDA-Public Use
  Company Number: US-PFIZER INC-2013244539

PATIENT
  Age: 44 Year
  Sex: Female

DRUGS (19)
  1. CELEBREX [Suspect]
     Dosage: UNK
  2. ERYTHROMYCIN [Suspect]
     Dosage: UNK
  3. ROBAXIN [Suspect]
     Dosage: UNK
  4. TIGAN [Suspect]
     Dosage: UNK
  5. BACITRACIN [Suspect]
     Dosage: UNK
  6. NEOSPORIN [Suspect]
     Dosage: UNK
  7. MORPHINE SULFATE [Suspect]
     Dosage: UNK
  8. POLYSPORIN [Suspect]
     Dosage: UNK
  9. ATROVENT [Suspect]
     Dosage: UNK
     Route: 055
  10. CYMBALTA [Suspect]
     Dosage: UNK
  11. ZOCOR [Suspect]
     Dosage: UNK
  12. DEMEROL [Suspect]
     Dosage: UNK
  13. CODEINE [Suspect]
     Dosage: UNK
  14. BACTRIM [Suspect]
     Dosage: UNK
  15. BACLOFEN [Suspect]
     Dosage: UNK
  16. PROVIGIL [Suspect]
     Dosage: UNK
  17. ROZEREM [Suspect]
     Dosage: UNK
  18. ZANAFLEX [Suspect]
     Dosage: UNK
  19. COMPAZINE [Suspect]
     Dosage: UNK

REACTIONS (1)
  - Drug hypersensitivity [Unknown]
